FAERS Safety Report 9705634 (Version 1)
Quarter: 2013Q4

REPORT INFORMATION
  Report Type: Spontaneous
  Country: US (occurrence: US)
  Receive Date: 20131122
  Receipt Date: 20131122
  Transmission Date: 20140711
  Serious: No
  Sender: FDA-Public Use
  Company Number: US-GILEAD-2008-0017247

PATIENT
  Age: 49 Year
  Sex: Female
  Weight: 83.46 kg

DRUGS (4)
  1. LETAIRIS [Suspect]
     Indication: PULMONARY ARTERIAL HYPERTENSION
     Route: 048
     Dates: start: 20080306
  2. COUMADIN [Concomitant]
     Route: 048
  3. VENTAVIS [Concomitant]
     Route: 048
  4. FUROSEMIDE [Concomitant]
     Route: 048

REACTIONS (1)
  - Nasal congestion [Unknown]
